FAERS Safety Report 22636852 (Version 1)
Quarter: 2023Q2

REPORT INFORMATION
  Report Type: Spontaneous
  Country: CN (occurrence: CN)
  Receive Date: 20230626
  Receipt Date: 20230626
  Transmission Date: 20230722
  Serious: Yes (Other)
  Sender: FDA-Public Use
  Company Number: CN-ALKEM LABORATORIES LIMITED-CN-ALKEM-2023-06773

PATIENT
  Age: 63 Year
  Sex: Female

DRUGS (1)
  1. COLCHICINE [Suspect]
     Active Substance: COLCHICINE
     Indication: Product used for unknown indication
     Dosage: 0.007 MILLIGRAM/KILOGRAM (0.38 MILLIGRAM TOTAL INGESTED DOSE)
     Route: 048

REACTIONS (2)
  - Accidental poisoning [Recovering/Resolving]
  - Drug level increased [Recovering/Resolving]
